FAERS Safety Report 7541639-4 (Version None)
Quarter: 2011Q2

REPORT INFORMATION
  Report Type: 
  Country: None (occurrence: None)
  Receive Date: 20110603
  Receipt Date: 20110517
  Transmission Date: 20111010
  Serious: Yes (Death)
  Sender: FDA-Public Use
  Company Number: 2011MA006363

PATIENT
  Age: 39 Year
  Sex: Male

DRUGS (8)
  1. DIAZEPAM [Concomitant]
  2. OXAZEPAM [Suspect]
     Indication: DEPRESSION SUICIDAL
     Dosage: ;PO
     Route: 048
  3. THC [Concomitant]
  4. VENLAFAXINE [Concomitant]
  5. CODEINE [Concomitant]
  6. ZYPREXA [Suspect]
     Dosage: 5 MG;BID;PO
     Route: 048
  7. LYRICA [Suspect]
     Dosage: ;PO
     Route: 048
  8. MORPHINE [Concomitant]

REACTIONS (9)
  - EOSINOPHILIA [None]
  - BRONCHITIS CHRONIC [None]
  - HYPERSENSITIVITY [None]
  - TOXICITY TO VARIOUS AGENTS [None]
  - MEDICATION RESIDUE [None]
  - ARRHYTHMIA [None]
  - PULMONARY OEDEMA [None]
  - EOSINOPHILIC MYOCARDITIS [None]
  - EMPHYSEMA [None]
